FAERS Safety Report 24457056 (Version 1)
Quarter: 2024Q4

REPORT INFORMATION
  Report Type: Spontaneous
  Country: CN (occurrence: CN)
  Receive Date: 20241018
  Receipt Date: 20241018
  Transmission Date: 20250114
  Serious: Yes (Hospitalization, Other)
  Sender: BAXTER
  Company Number: None

PATIENT
  Age: 44 Year
  Sex: Female
  Weight: 80 kg

DRUGS (3)
  1. CYCLOPHOSPHAMIDE [Suspect]
     Active Substance: CYCLOPHOSPHAMIDE
     Indication: Neoplasm malignant
     Dosage: 1G, ONE TIME IN ONE DAY DILUTED WITH 30 ML 0.9% SODIUM CHLORIDE, START TIME AT 14: 36
     Route: 041
     Dates: start: 20240912, end: 20240912
  2. CYCLOPHOSPHAMIDE [Suspect]
     Active Substance: CYCLOPHOSPHAMIDE
     Indication: Chemotherapy
  3. SODIUM CHLORIDE [Suspect]
     Active Substance: SODIUM CHLORIDE
     Indication: Medication dilution
     Dosage: 30ML ONE TIME IN ONE DAY USED TO DILUTE CYCLOPHOSPHAMIDE FOR INJECTION 1G, START TIME AT 14:36, 0.9%
     Route: 041
     Dates: start: 20240912, end: 20240912

REACTIONS (2)
  - Myelosuppression [Recovering/Resolving]
  - Anaemia [Unknown]

NARRATIVE: CASE EVENT DATE: 20240915
